FAERS Safety Report 7889563-1 (Version None)
Quarter: 2011Q4

REPORT INFORMATION
  Report Type: 
  Country: None (occurrence: None)
  Receive Date: 20111103
  Receipt Date: 20110322
  Transmission Date: 20120403
  Serious: No
  Sender: FDA-Public Use
  Company Number: US-BRISTOL-MYERS SQUIBB COMPANY-15597305

PATIENT
  Sex: Female

DRUGS (2)
  1. KENALOG-40 [Suspect]
     Indication: RASH
     Route: 030
     Dates: start: 20101006
  2. KENALOG-40 [Suspect]
     Indication: DERMATITIS CONTACT
     Route: 030
     Dates: start: 20101006

REACTIONS (2)
  - FLUSHING [None]
  - URTICARIA [None]
